FAERS Safety Report 10922620 (Version 1)
Quarter: 2015Q1

REPORT INFORMATION
  Report Type: Spontaneous
  Country: US (occurrence: None)
  Receive Date: 20150313
  Receipt Date: 20150313
  Transmission Date: 20150721
  Serious: Yes (Death)
  Sender: FDA-Public Use
  Company Number: 2015PL000024

PATIENT
  Age: 47 Year
  Sex: Female

DRUGS (15)
  1. METHIMAZOLE (THIAMAZOLE) [Concomitant]
  2. METOPROLOL SUCCINATE (METOPROLOL SUCCINATE) [Concomitant]
     Active Substance: METOPROLOL SUCCINATE
  3. PROAIR HFA [Concomitant]
     Active Substance: ALBUTEROL SULFATE
  4. MECLIZINE /00072801/ (MECLOZINE) [Concomitant]
  5. DICYCLOMINE /00068601/ (DICYCLOVERINE) [Concomitant]
  6. METOCLOPRAMIDE (METOCLOPRAMIDE) [Concomitant]
     Active Substance: METOCLOPRAMIDE
  7. ONDANSETRON HCL (ONDANSETRON HYDROCHLORIDE) [Concomitant]
     Active Substance: ONDANSETRON HYDROCHLORIDE
  8. DOXYCYCLINE HYCLATE (DOXYCYCLINE HYCLATE) [Concomitant]
     Active Substance: DOXYCYCLINE HYCLATE
  9. FLUOXETINE HCL [Concomitant]
     Active Substance: FLUOXETINE HYDROCHLORIDE
  10. METFORMIN HCL (METFORMIN HYDROCHLORIDE) [Concomitant]
  11. LOTRONEX [Suspect]
     Active Substance: ALOSETRON HYDROCHLORIDE
     Indication: IRRITABLE BOWEL SYNDROME
     Route: 048
     Dates: start: 20150130, end: 20150223
  12. WELLBUTRIN [Concomitant]
     Active Substance: BUPROPION HYDROCHLORIDE
  13. BENZONATATE (BENZONATATE) [Concomitant]
     Active Substance: BENZONATATE
  14. MODAFINIL (MODAFINIL) [Concomitant]
     Active Substance: MODAFINIL
  15. PANTOPRAZOLE SODIUM (PANTOPRAZOLE SODIUM SESQUIHYDRATE) [Concomitant]

REACTIONS (3)
  - Anxiety [None]
  - Depressed mood [None]
  - Completed suicide [None]

NARRATIVE: CASE EVENT DATE: 201502
